FAERS Safety Report 10019842 (Version 3)
Quarter: 2014Q1

REPORT INFORMATION
  Report Type: Spontaneous
  Country: CO (occurrence: CO)
  Receive Date: 20140318
  Receipt Date: 20140321
  Transmission Date: 20141002
  Serious: Yes (Other)
  Sender: FDA-Public Use
  Company Number: CO-VERTEX PHARMACEUTICALS INC-2014-001055

PATIENT
  Age: 45 Year
  Sex: Male
  Weight: 74 kg

DRUGS (3)
  1. INCIVO [Suspect]
     Indication: HEPATITIS C
     Dosage: 375 MG, TID
     Route: 048
     Dates: start: 20140108, end: 20140310
  2. RIBAVIRIN [Suspect]
     Indication: HEPATITIS C
     Dosage: 200 MG, UNK, 5 IN 24 HOURS
     Route: 048
     Dates: start: 20140108
  3. INTERFERON ALFA 2A [Suspect]
     Indication: HEPATITIS C
     Dosage: 180 ?G, QW
     Route: 058
     Dates: start: 20140108

REACTIONS (5)
  - Erythema [Not Recovered/Not Resolved]
  - Face oedema [Recovering/Resolving]
  - Rash [Unknown]
  - Pruritus [Unknown]
  - Dry skin [Not Recovered/Not Resolved]
